FAERS Safety Report 5158409-7 (Version None)
Quarter: 2006Q4

REPORT INFORMATION
  Report Type: 
  Country: None (occurrence: None)
  Receive Date: 20061128
  Receipt Date: 20060914
  Transmission Date: 20070319
  Serious: Yes (Hospitalization, Other)
  Sender: FDA-Public Use
  Company Number: US-AVENTIS-200617791US

PATIENT
  Sex: Female

DRUGS (12)
  1. ARAVA [Suspect]
     Indication: RHEUMATOID ARTHRITIS
     Dates: start: 20041209
  2. ENBREL [Concomitant]
  3. REMICADE [Concomitant]
     Dosage: DOSE: UNKNOWN
  4. ALLEGRA [Concomitant]
     Dosage: DOSE: UNKNOWN
  5. BENADRYL [Concomitant]
     Dosage: DOSE: UNKNOWN
  6. SOLU-CORTEF [Concomitant]
     Dosage: DOSE: UNKNOWN
  7. VICODIN [Concomitant]
     Dosage: DOSE: UNKNOWN
  8. ZANTAC [Concomitant]
     Dosage: DOSE: UNKNOWN
  9. DIPROLENE [Concomitant]
     Dosage: DOSE: UNKNOWN
  10. MULTIVITAMINS W IRON [Concomitant]
     Dosage: DOSE: UNKNOWN
  11. METHOTREXATE [Concomitant]
     Dosage: DOSE: UNKNOWN
  12. PREDNISONE TAB [Concomitant]
     Dosage: DOSE: UNKNOWN

REACTIONS (28)
  - ALANINE AMINOTRANSFERASE INCREASED [None]
  - ANAEMIA [None]
  - ASPARTATE AMINOTRANSFERASE INCREASED [None]
  - BACTERIURIA [None]
  - BLOOD ALKALINE PHOSPHATASE INCREASED [None]
  - BLOOD IRON DECREASED [None]
  - BLOOD LACTATE DEHYDROGENASE INCREASED [None]
  - BLOOD URINE PRESENT [None]
  - GENITAL ULCERATION [None]
  - HAEMATOCRIT DECREASED [None]
  - HAEMOGLOBIN DECREASED [None]
  - HERPES SIMPLEX [None]
  - HYPOTHYROIDISM [None]
  - LIVER FUNCTION TEST ABNORMAL [None]
  - NEUTROPHIL PERCENTAGE INCREASED [None]
  - PLATELET COUNT INCREASED [None]
  - PROTEIN URINE PRESENT [None]
  - PRURITUS [None]
  - PYREXIA [None]
  - RASH MACULAR [None]
  - RASH VESICULAR [None]
  - RED BLOOD CELL COUNT DECREASED [None]
  - SPECIFIC GRAVITY URINE INCREASED [None]
  - STEVENS-JOHNSON SYNDROME [None]
  - SYSTEMIC LUPUS ERYTHEMATOSUS [None]
  - URINE ABNORMALITY [None]
  - UROSEPSIS [None]
  - WHITE BLOOD CELLS URINE POSITIVE [None]
